FAERS Safety Report 24830644 (Version 1)
Quarter: 2025Q1

REPORT INFORMATION
  Report Type: Spontaneous
  Country: US (occurrence: US)
  Receive Date: 20250110
  Receipt Date: 20250110
  Transmission Date: 20250409
  Serious: Yes (Hospitalization)
  Sender: ELI LILLY AND COMPANY
  Company Number: US-ELI_LILLY_AND_COMPANY-US202501000689

PATIENT
  Age: 54 Year
  Sex: Female

DRUGS (1)
  1. IXEKIZUMAB [Suspect]
     Active Substance: IXEKIZUMAB
     Indication: Psoriatic arthropathy
     Route: 065

REACTIONS (6)
  - Intestinal perforation [Unknown]
  - Dehiscence [Unknown]
  - Abdominal abscess [Unknown]
  - Immunosuppression [Unknown]
  - Malnutrition [Unknown]
  - Crohn^s disease [Unknown]
